FAERS Safety Report 23176806 (Version 1)
Quarter: 2023Q4

REPORT INFORMATION
  Report Type: Spontaneous
  Country: DE (occurrence: DE)
  Receive Date: 20231113
  Receipt Date: 20231113
  Transmission Date: 20240110
  Serious: Yes (Hospitalization, Other)
  Sender: FDA-Public Use
  Company Number: DE-GLAXOSMITHKLINE-DE2018GSK087681

PATIENT
  Age: 75 Year
  Sex: Male
  Weight: 81 kg

DRUGS (30)
  1. CHOLECALCIFEROL [Suspect]
     Active Substance: CHOLECALCIFEROL
     Indication: Osteoporosis
     Dosage: 1000 IU, UNK
     Route: 048
  2. ENOXAPARIN SODIUM [Suspect]
     Active Substance: ENOXAPARIN SODIUM
     Indication: Venous thrombosis limb
     Dosage: UNK
     Route: 065
  3. DENOSUMAB [Suspect]
     Active Substance: DENOSUMAB
     Indication: Product used for unknown indication
     Dosage: UNK
     Route: 065
  4. NADROPARIN CALCIUM [Suspect]
     Active Substance: NADROPARIN CALCIUM
     Indication: Venous thrombosis limb
     Dosage: UNK
     Route: 065
  5. NADROPARIN CALCIUM [Suspect]
     Active Substance: NADROPARIN CALCIUM
     Indication: Venous thrombosis limb
     Dosage: UNK
     Route: 065
  6. PROLIA [Suspect]
     Active Substance: DENOSUMAB
     Dosage: 60 MG, QMO
     Route: 065
     Dates: start: 201405
  7. PROLIA [Suspect]
     Active Substance: DENOSUMAB
     Indication: Osteoporosis
     Dosage: UNK
     Route: 065
  8. QUETIAPINE [Suspect]
     Active Substance: QUETIAPINE
     Indication: Product used for unknown indication
     Dosage: 25 MG, QD
     Route: 065
  9. TOCILIZUMAB [Suspect]
     Active Substance: TOCILIZUMAB
     Dosage: 162 MG, QD
     Route: 058
     Dates: start: 20180131
  10. TOCILIZUMAB [Suspect]
     Active Substance: TOCILIZUMAB
     Indication: Myalgia
     Dosage: 162 MG, BID
     Route: 058
     Dates: start: 20150706
  11. TOCILIZUMAB [Suspect]
     Active Substance: TOCILIZUMAB
     Indication: Vasculitis
     Dosage: 162 MG, BID
     Route: 058
     Dates: start: 20140601
  12. TOCILIZUMAB [Suspect]
     Active Substance: TOCILIZUMAB
     Dosage: (162 MG  WE)
     Route: 058
     Dates: start: 20190227, end: 20190327
  13. TOCILIZUMAB [Suspect]
     Active Substance: TOCILIZUMAB
     Dosage: 162 MG, UNK (EVERY 10 DAYS)
     Route: 058
  14. TOCILIZUMAB [Suspect]
     Active Substance: TOCILIZUMAB
     Dosage: 162 MG, UNK (EVERY 12 DAYS)
     Route: 058
  15. TOCILIZUMAB [Suspect]
     Active Substance: TOCILIZUMAB
     Indication: Rheumatoid arthritis
     Dosage: 162 MG, UNK (EVERY 14 DAYS)
     Route: 058
     Dates: start: 201704
  16. TOCILIZUMAB [Suspect]
     Active Substance: TOCILIZUMAB
     Dosage: 162 MG, UNK, EVERY 12 DAYS
     Route: 058
  17. TOCILIZUMAB [Suspect]
     Active Substance: TOCILIZUMAB
     Dosage: 162 MG, Z (1 DOSE 3 WEEKS)
     Route: 065
     Dates: start: 201811
  18. TOCILIZUMAB [Suspect]
     Active Substance: TOCILIZUMAB
     Dosage: 162 MG, BID
     Route: 058
     Dates: start: 20140601
  19. TOCILIZUMAB [Suspect]
     Active Substance: TOCILIZUMAB
     Dosage: 162 MG, BID
     Route: 058
     Dates: start: 20150706
  20. TOCILIZUMAB [Suspect]
     Active Substance: TOCILIZUMAB
     Dosage: 162 MG, BID
     Route: 058
  21. TOCILIZUMAB [Suspect]
     Active Substance: TOCILIZUMAB
     Dosage: 324 MG, Z ( EVERY 12 DAYS)
     Route: 058
     Dates: start: 20150706
  22. TOCILIZUMAB [Suspect]
     Active Substance: TOCILIZUMAB
     Dosage: 162 MG( Z EVERY 9 DAYS)
     Route: 058
     Dates: start: 20190328
  23. TOCILIZUMAB [Suspect]
     Active Substance: TOCILIZUMAB
     Dosage: 162 MG, EVERY 14 DAYS
     Route: 058
  24. TOCILIZUMAB [Suspect]
     Active Substance: TOCILIZUMAB
     Dosage: 162 MG, EVERY 10 DAYS
     Route: 058
     Dates: start: 20180414
  25. AMLODIPINE [Concomitant]
     Active Substance: AMLODIPINE BESYLATE
     Dosage: 2.5 MG, QD
     Route: 065
  26. AMLODIPINE [Concomitant]
     Active Substance: AMLODIPINE BESYLATE
     Indication: Product used for unknown indication
     Dosage: 5 MG, QD
     Route: 065
  27. CORTISONE ACETATE [Concomitant]
     Active Substance: CORTISONE ACETATE
     Indication: Product used for unknown indication
     Dosage: UNK
     Route: 065
  28. ESCITALOPRAM [Concomitant]
     Active Substance: ESCITALOPRAM OXALATE
     Indication: Product used for unknown indication
     Dosage: UNK
     Route: 065
  29. LISINOPRIL [Concomitant]
     Active Substance: LISINOPRIL
     Indication: Product used for unknown indication
     Dosage: UNK
     Route: 065
  30. PANTOPRAZOLE [Concomitant]
     Active Substance: PANTOPRAZOLE
     Indication: Product used for unknown indication
     Dosage: UNK
     Route: 065

REACTIONS (27)
  - Sleep disorder [Unknown]
  - Dysuria [Unknown]
  - Impaired healing [Recovered/Resolved]
  - Venous thrombosis limb [Not Recovered/Not Resolved]
  - Depression [Not Recovered/Not Resolved]
  - Erysipelas [Recovering/Resolving]
  - Prostate cancer [Not Recovered/Not Resolved]
  - Suture rupture [Recovered/Resolved]
  - Rash erythematous [Unknown]
  - Soft tissue disorder [Recovered/Resolved]
  - Fall [Unknown]
  - Hyperaesthesia [Unknown]
  - Sepsis [Recovering/Resolving]
  - Lymphoedema [Recovered/Resolved]
  - Platelet count decreased [Unknown]
  - Lymphocele [Recovered/Resolved]
  - Autoimmune disorder [Unknown]
  - Product use in unapproved indication [Unknown]
  - Inappropriate schedule of product administration [Unknown]
  - Off label use [Unknown]
  - Eye inflammation [Recovering/Resolving]
  - Acetabulum fracture [Recovering/Resolving]
  - Bronchitis [Recovered/Resolved]
  - Angioedema [Recovered/Resolved]
  - Wound dehiscence [Recovered/Resolved]
  - C-reactive protein increased [Recovering/Resolving]
  - Leukopenia [Recovered/Resolved]

NARRATIVE: CASE EVENT DATE: 20140701
